FAERS Safety Report 24551347 (Version 1)
Quarter: 2024Q4

REPORT INFORMATION
  Report Type: Spontaneous
  Country: RO (occurrence: RO)
  Receive Date: 20241026
  Receipt Date: 20241026
  Transmission Date: 20250114
  Serious: Yes (Other)
  Sender: ABBVIE
  Company Number: RO-ABBVIE-5974986

PATIENT
  Age: 57 Year

DRUGS (2)
  1. VENETOCLAX [Suspect]
     Active Substance: VENETOCLAX
     Indication: Acute myelomonocytic leukaemia
     Route: 048
     Dates: start: 20230127
  2. AZACITIDINE [Concomitant]
     Active Substance: AZACITIDINE
     Indication: Acute myelomonocytic leukaemia
     Dosage: 75 MG/MP
     Dates: start: 20230127

REACTIONS (10)
  - Pancytopenia [Unknown]
  - Thrombocytopenia [Unknown]
  - Therapeutic product effect incomplete [Unknown]
  - Lung disorder [Unknown]
  - Neutropenia [Unknown]
  - Interstitial lung abnormality [Unknown]
  - Treatment noncompliance [Unknown]
  - Anaemia [Unknown]
  - Acute myelomonocytic leukaemia [Unknown]
  - General physical health deterioration [Unknown]

NARRATIVE: CASE EVENT DATE: 20231001
